FAERS Safety Report 9123021 (Version 1)
Quarter: 2013Q1

REPORT INFORMATION
  Report Type: Spontaneous
  Country: US (occurrence: None)
  Receive Date: 20130130
  Receipt Date: 20130130
  Transmission Date: 20140127
  Serious: Yes (Death)
  Sender: FDA-Public Use
  Company Number: B0859049A

PATIENT
  Age: 32 Year
  Sex: Male

DRUGS (7)
  1. MORPHINE [Suspect]
     Dosage: UNK  /  UNK  /  ORAL?UNK
     Route: 048
  2. DIAZEPAM [Suspect]
     Dosage: UNK  /  UNK  /  ORAL?UNK
     Route: 048
  3. BUPROPION HYDROCHLORIDE [Suspect]
     Dosage: UNK  /  UNK  /  ORAL?UNK
     Route: 048
  4. PAROXETINE HYDROCHLORIDE (FORMULATION UNKNOWN) (GENERIC) (PAROXETINE HYDROCHLORIDE) [Suspect]
     Dosage: UNK  /  UNK  /  ORAL?UNK
     Route: 048
  5. DEXTROMETHORPHAN [Suspect]
     Dosage: UNK  /  UNK  /  ORAL?UNK
     Route: 048
  6. TRAZODONE [Suspect]
     Dosage: UNK  /  UNK  /  ORAL?UNK
     Route: 048
  7. OXYCODONE [Suspect]
     Dosage: UNK  /  UNK  /  ORAL?UNK
     Route: 048

REACTIONS (1)
  - Drug abuse [None]
